FAERS Safety Report 7173227-6 (Version None)
Quarter: 2010Q4

REPORT INFORMATION
  Report Type: 
  Country: None (occurrence: None)
  Receive Date: 20101203
  Receipt Date: 20101117
  Transmission Date: 20110411
  Serious: Yes (Other)
  Sender: FDA-Public Use
  Company Number: 2010BI040969

PATIENT
  Age: 59 Year
  Sex: Female

DRUGS (17)
  1. ZEVALIN [Suspect]
     Indication: FOLLICLE CENTRE LYMPHOMA, FOLLICULAR GRADE I, II, III
     Dosage: 848 MBQ; 1X, IV
     Route: 042
     Dates: start: 20081202, end: 20081209
  2. RITUXAN [Concomitant]
  3. RESTAMIN [Concomitant]
  4. LOXONIN [Concomitant]
  5. CYTOTEC [Concomitant]
  6. SOLU-CORTEF [Concomitant]
  7. LASTET [Concomitant]
  8. MAGLAX [Concomitant]
  9. MYSLEE [Concomitant]
  10. GASTER D [Concomitant]
  11. OMEPRAL [Concomitant]
  12. RITUXIMAB [Concomitant]
  13. MITOXANTRONE [Concomitant]
  14. ETOPOSIDE [Concomitant]
  15. CARBOPLATIN [Concomitant]
  16. PREDNISOLONE [Concomitant]
  17. FLUDEOXYGLUCOSE [Concomitant]

REACTIONS (7)
  - ANAEMIA [None]
  - GASTRIC ULCER [None]
  - GASTRITIS [None]
  - HEPATIC FUNCTION ABNORMAL [None]
  - NASOPHARYNGITIS [None]
  - PLATELET COUNT DECREASED [None]
  - WHITE BLOOD CELL COUNT DECREASED [None]
